FAERS Safety Report 9146189 (Version 1)
Quarter: 2013Q1

REPORT INFORMATION
  Report Type: Spontaneous
  Country: US (occurrence: US)
  Receive Date: 20130307
  Receipt Date: 20130307
  Transmission Date: 20140127
  Serious: No
  Sender: FDA-Public Use
  Company Number: US-BAYER-2013-018548

PATIENT
  Age: 48 Year
  Sex: Female
  Weight: 67.12 kg

DRUGS (6)
  1. BETASERON [Suspect]
     Dosage: 0.25 MG, UNK
     Route: 058
  2. LEVOTHYROXIN [Concomitant]
     Dosage: 100 ?G, UNK
  3. CALCIUM [Concomitant]
     Dosage: 500
  4. VITAMIN D [Concomitant]
     Dosage: 1000 U, UNK
  5. VITAMIN E [Concomitant]
     Dosage: 400 U, UNK
  6. FISH OIL [Concomitant]

REACTIONS (2)
  - Injection site inflammation [Unknown]
  - Injection site mass [Unknown]
